FAERS Safety Report 8776786 (Version 3)
Quarter: 2012Q4

REPORT INFORMATION
  Report Type: 
  Country: JP (occurrence: JP)
  Receive Date: 20120911
  Receipt Date: 20121229
  Transmission Date: 20130627
  Serious: Yes (Other)
  Sender: FDA-Public Use
  Company Number: JP-009507513-1208JPN009648

PATIENT
  Age: 58 Year
  Sex: Male
  Weight: 55 kg

DRUGS (14)
  1. PEGINTRON [Suspect]
     Indication: CHRONIC HEPATITIS C
     Dosage: 1.5 Microgram per kilogram, qw
     Route: 058
     Dates: start: 20120619, end: 20120619
  2. PEGINTRON [Suspect]
     Dosage: 1.0 Microgram per kilogram, qw
     Route: 058
     Dates: start: 20120625, end: 20120625
  3. PEGINTRON [Suspect]
     Dosage: 0.5 Microgram per kilogram, qw
     Route: 058
     Dates: start: 20120702
  4. PEGINTRON [Suspect]
     Dosage: 0.6 Microgram per kilogram, qw
     Route: 058
     Dates: end: 20120813
  5. PEGINTRON [Suspect]
     Dosage: 0.8 Microgram per kilogram, qd
     Route: 058
     Dates: start: 20120820, end: 20121126
  6. REBETOL [Suspect]
     Indication: CHRONIC HEPATITIS C
     Dosage: 600 mg, qd
     Route: 048
     Dates: start: 20120619, end: 20120722
  7. REBETOL [Suspect]
     Dosage: 400 mg, qd
     Route: 048
     Dates: start: 20120723, end: 20121126
  8. TELAVIC [Suspect]
     Indication: CHRONIC HEPATITIS C
     Dosage: 1500 mg, qd, cumulative dose: 10500 mg
     Route: 048
     Dates: start: 20120619, end: 20120910
  9. LASIX (FUROSEMIDE SODIUM) [Concomitant]
     Indication: HYPERTENSION
     Dosage: 20 mg, qd formulation:POR
     Route: 048
  10. FEROTYM [Concomitant]
     Indication: IRON DEFICIENCY ANAEMIA
     Dosage: 100 mg, qd. Formulation:POR
     Route: 048
  11. CLARITIN REDITABS [Concomitant]
     Indication: PROPHYLAXIS
     Dosage: 10 mg, qd. Formulation: POR
     Route: 048
  12. LIVALO [Concomitant]
     Indication: HYPERLIPIDAEMIA
     Dosage: 2 mg, qd.
     Route: 048
  13. EPADEL S [Concomitant]
     Indication: HYPERLIPIDAEMIA
     Dosage: 1800 mg, qd
     Route: 048
  14. LANSOPRAZOLE OD DK [Concomitant]
     Indication: GASTROOESOPHAGEAL REFLUX DISEASE
     Dosage: 15 mg, qd. Formulation:POR
     Route: 048

REACTIONS (4)
  - Anaemia [Not Recovered/Not Resolved]
  - Anaemia [Not Recovered/Not Resolved]
  - Platelet count decreased [Not Recovered/Not Resolved]
  - Anaemia [Not Recovered/Not Resolved]
